FAERS Safety Report 12961394 (Version 1)
Quarter: 2016Q4

REPORT INFORMATION
  Report Type: Report from Study
  Country: CA (occurrence: CA)
  Receive Date: 20161121
  Receipt Date: 20161121
  Transmission Date: 20170207
  Serious: No
  Sender: FDA-Public Use
  Company Number: CA-THERATECHNOLOGIES, INC.-TH-2016-00153

PATIENT
  Sex: Male

DRUGS (1)
  1. EGRIFTA [Suspect]
     Active Substance: TESAMORELIN
     Indication: LIPODYSTROPHY ACQUIRED
     Dosage: 2 MILLIGRAM
     Route: 058
     Dates: start: 201605

REACTIONS (1)
  - Nausea [Not Recovered/Not Resolved]
